FAERS Safety Report 8523322-1 (Version None)
Quarter: 2012Q3

REPORT INFORMATION
  Report Type: 
  Country: None (occurrence: None)
  Receive Date: 20120720
  Receipt Date: 20120711
  Transmission Date: 20120928
  Serious: Yes (Other)
  Sender: FDA-Public Use
  Company Number: GR-JNJFOC-20120705376

PATIENT
  Age: 70 Year
  Sex: Male

DRUGS (5)
  1. SIMPONI [Suspect]
     Route: 058
     Dates: start: 20110501
  2. LOPRESSOR [Concomitant]
     Indication: HYPERTENSION
     Route: 065
  3. CYCLOSPORINE [Concomitant]
     Indication: RHEUMATOID ARTHRITIS
     Route: 065
  4. IRBESARTAN [Concomitant]
     Indication: HYPERTENSION
     Route: 065
  5. SIMPONI [Suspect]
     Indication: RHEUMATOID ARTHRITIS
     Route: 058
     Dates: start: 20120525, end: 20120525

REACTIONS (2)
  - POLYARTHRITIS [None]
  - EJECTION FRACTION DECREASED [None]
